FAERS Safety Report 12327003 (Version 1)
Quarter: 2016Q2

REPORT INFORMATION
  Report Type: Spontaneous
  Country: JP (occurrence: JP)
  Receive Date: 20160503
  Receipt Date: 20160503
  Transmission Date: 20160815
  Serious: Yes (Other)
  Sender: FDA-Public Use
  Company Number: JP-ROCHE-1751205

PATIENT
  Age: 92 Year
  Sex: Female

DRUGS (1)
  1. ACTIVACIN [Suspect]
     Active Substance: ALTEPLASE
     Indication: CEREBRAL INFARCTION
     Route: 042

REACTIONS (1)
  - Pneumonia [Unknown]
